FAERS Safety Report 6173478-3 (Version None)
Quarter: 2009Q2

REPORT INFORMATION
  Report Type: 
  Country: None (occurrence: None)
  Receive Date: 20090430
  Receipt Date: 20090422
  Transmission Date: 20091009
  Serious: Yes (Hospitalization)
  Sender: FDA-Public Use
  Company Number: A0772794A

PATIENT
  Age: 55 Year
  Sex: Female

DRUGS (6)
  1. TYKERB [Suspect]
     Indication: DRUG USE FOR UNKNOWN INDICATION
     Dosage: 3TAB PER DAY
     Route: 048
     Dates: start: 20090206
  2. XELODA [Concomitant]
  3. LISINOPRIL [Concomitant]
  4. CARVEDILOL [Concomitant]
  5. POTASSIUM CHLORIDE [Concomitant]
  6. FUROSEMIDE [Concomitant]

REACTIONS (11)
  - CANDIDIASIS [None]
  - CHILLS [None]
  - DIARRHOEA [None]
  - INFLUENZA LIKE ILLNESS [None]
  - NAUSEA [None]
  - PULMONARY THROMBOSIS [None]
  - PYREXIA [None]
  - STOMATITIS [None]
  - THROMBOSIS [None]
  - VIRAL INFECTION [None]
  - VOMITING [None]
